FAERS Safety Report 12320860 (Version 1)
Quarter: 2016Q2

REPORT INFORMATION
  Report Type: Spontaneous
  Country: US (occurrence: US)
  Receive Date: 20160429
  Receipt Date: 20160429
  Transmission Date: 20160815
  Serious: No
  Sender: FDA-Public Use
  Company Number: US-ROCHE-1630283

PATIENT
  Sex: Male
  Weight: 68.1 kg

DRUGS (1)
  1. ESBRIET [Suspect]
     Active Substance: PIRFENIDONE
     Indication: PRODUCT USED FOR UNKNOWN INDICATION
     Dosage: 267 MG CAPSULE, 3 CAPS PO TID
     Route: 048
     Dates: start: 20150323

REACTIONS (1)
  - Malaise [Unknown]
